FAERS Safety Report 24878781 (Version 1)
Quarter: 2025Q1

REPORT INFORMATION
  Report Type: Spontaneous
  Country: CN (occurrence: CN)
  Receive Date: 20250123
  Receipt Date: 20250123
  Transmission Date: 20250408
  Serious: Yes (Other)
  Sender: MYLAN
  Company Number: CN-MYLANLABS-2025M1005394

PATIENT
  Age: 49 Year
  Sex: Male
  Weight: 60 kg

DRUGS (1)
  1. NORVASC [Suspect]
     Active Substance: AMLODIPINE BESYLATE
     Indication: Hypertension
     Dosage: 5 MILLIGRAM, QD (ONCE DAILY)
     Route: 048
     Dates: start: 20241218, end: 20250109

REACTIONS (2)
  - Oedema peripheral [Recovering/Resolving]
  - Gingival hypertrophy [Recovering/Resolving]

NARRATIVE: CASE EVENT DATE: 20250109
